FAERS Safety Report 12517450 (Version 3)
Quarter: 2016Q4

REPORT INFORMATION
  Report Type: Spontaneous
  Country: US (occurrence: US)
  Receive Date: 20160630
  Receipt Date: 20161024
  Transmission Date: 20170207
  Serious: No
  Sender: FDA-Public Use
  Company Number: US-ALEXION-A201604005

PATIENT
  Sex: Male

DRUGS (1)
  1. KANUMA [Suspect]
     Active Substance: SEBELIPASE ALFA
     Indication: LYSOSOMAL ACID LIPASE DEFICIENCY
     Dosage: 1 MG/KG, Q2W
     Route: 042

REACTIONS (4)
  - Dark circles under eyes [Unknown]
  - Hepatic enzyme increased [Not Recovered/Not Resolved]
  - Low density lipoprotein increased [Unknown]
  - Drug ineffective [Unknown]
